FAERS Safety Report 9275767 (Version 1)
Quarter: 2013Q2

REPORT INFORMATION
  Report Type: Spontaneous
  Country: GB (occurrence: GB)
  Receive Date: 20130507
  Receipt Date: 20130507
  Transmission Date: 20140414
  Serious: Yes (Other)
  Sender: FDA-Public Use
  Company Number: GB-NOVOPROD-376642

PATIENT
  Age: 65 Year
  Sex: Female

DRUGS (12)
  1. NOVOMIX 30 FLEXPEN [Suspect]
     Indication: DIABETES MELLITUS
     Dosage: 40 UNITS, QAM AND 16 UNITS, AT 6PM).
     Dates: start: 201203
  2. CO-DYDRAMOL [Suspect]
     Indication: HEADACHE
     Dosage: UNK
     Dates: start: 20130328
  3. DIAZEPAM [Suspect]
     Indication: MUSCLE SPASMS
     Dosage: 5 MG, QID
     Dates: start: 2006
  4. DIAZEPAM [Suspect]
     Dosage: 2 MG, UNK
  5. LEVOTHYROXINE [Suspect]
     Indication: PRODUCT USED FOR UNKNOWN INDICATION
     Dosage: 100 MG, UNK
  6. LEVOTHYROXINE [Suspect]
     Dosage: 25 MG, UNK
  7. MEBEVERINE [Suspect]
     Indication: IRRITABLE BOWEL SYNDROME
     Dosage: 135 MG, UNK
     Dates: start: 20121229
  8. MEBEVERINE [Suspect]
     Indication: CONSTIPATION
  9. MEBEVERINE [Suspect]
     Indication: DIARRHOEA
  10. PARACETAMOL [Suspect]
     Indication: HEADACHE
     Dosage: 6 HOURLY
  11. COLOFAC                            /00139402/ [Concomitant]
     Indication: PRODUCT USED FOR UNKNOWN INDICATION
  12. INSULIN [Concomitant]
     Indication: DIABETES MELLITUS

REACTIONS (19)
  - Anxiety [Unknown]
  - Renal failure chronic [Unknown]
  - Cyst [Unknown]
  - Cow^s milk intolerance [Unknown]
  - Drug interaction [Unknown]
  - Memory impairment [Unknown]
  - Headache [Not Recovered/Not Resolved]
  - Lactose intolerance [Unknown]
  - Mood swings [Unknown]
  - Myopathy [Unknown]
  - Panic attack [Unknown]
  - Polyneuropathy [Unknown]
  - Musculoskeletal pain [Unknown]
  - Condition aggravated [Unknown]
  - Gait disturbance [Unknown]
  - Muscle spasms [Unknown]
  - Drug ineffective [Unknown]
  - Diabetes mellitus [Unknown]
  - Blood glucose increased [Unknown]
